FAERS Safety Report 9938832 (Version 1)
Quarter: 2014Q1

REPORT INFORMATION
  Report Type: Report from Study
  Country: US (occurrence: US)
  Receive Date: 20140303
  Receipt Date: 20140303
  Transmission Date: 20141002
  Serious: No
  Sender: FDA-Public Use
  Company Number: US-ABBVIE-13P-163-1034488-00

PATIENT
  Age: 52 Year
  Sex: Female
  Weight: 86.26 kg

DRUGS (13)
  1. HUMIRA [Suspect]
     Indication: PSORIATIC ARTHROPATHY
     Dates: start: 2011, end: 2011
  2. HUMIRA [Suspect]
     Dates: start: 201208, end: 201211
  3. HUMIRA [Suspect]
     Dates: start: 201212
  4. METHOTREXATE [Concomitant]
     Indication: PSORIATIC ARTHROPATHY
  5. DICLOFENAC [Concomitant]
     Indication: PAIN
  6. WELLBUTRIN [Concomitant]
     Indication: DEPRESSION
  7. FOLIC ACID [Concomitant]
     Indication: PSORIATIC ARTHROPATHY
  8. CALCIUM [Concomitant]
     Indication: SUPPLEMENTATION THERAPY
  9. MAGNESIUM [Concomitant]
     Indication: SUPPLEMENTATION THERAPY
  10. ZINC [Concomitant]
     Indication: SUPPLEMENTATION THERAPY
  11. VITAMIN B [Concomitant]
     Indication: SUPPLEMENTATION THERAPY
  12. VITAMIN D [Concomitant]
     Indication: SUPPLEMENTATION THERAPY
  13. LOVAZA [Concomitant]
     Indication: BLOOD CHOLESTEROL INCREASED

REACTIONS (1)
  - Drug ineffective [Not Recovered/Not Resolved]
